FAERS Safety Report 23333712 (Version 1)
Quarter: 2023Q4

REPORT INFORMATION
  Report Type: Report from Study
  Country: CH (occurrence: CH)
  Receive Date: 20231223
  Receipt Date: 20231223
  Transmission Date: 20240109
  Serious: Yes (Hospitalization)
  Sender: FDA-Public Use
  Company Number: CH-ABBVIE-5439908

PATIENT
  Age: 76 Year
  Sex: Male

DRUGS (3)
  1. CARBIDOPA\LEVODOPA [Suspect]
     Active Substance: CARBIDOPA\LEVODOPA
     Indication: Parkinson^s disease
     Dosage: MD: 2.5 ML, CRD: 3.6 ML/H, CRN: 2.6ML/H, ED: 2.5 ML?FREQUENCY TEXT: 24H THERAPY
     Route: 050
     Dates: start: 20231004
  2. CARBIDOPA\LEVODOPA [Suspect]
     Active Substance: CARBIDOPA\LEVODOPA
     Route: 050
     Dates: start: 20170208
  3. CARBIDOPA\LEVODOPA [Suspect]
     Active Substance: CARBIDOPA\LEVODOPA
     Dosage: MD: 2.5 ML, CRD: 4.5 ML/H, CRN: UNKNOWN ML/H, ED: 2.5 ML?FREQUENCY TEXT: 24H THERAPY
     Route: 050
     Dates: start: 20230720, end: 20231004

REACTIONS (4)
  - General physical health deterioration [Not Recovered/Not Resolved]
  - Embedded device [Unknown]
  - Mobility decreased [Not Recovered/Not Resolved]
  - Device dislocation [Unknown]

NARRATIVE: CASE EVENT DATE: 20230901
